FAERS Safety Report 7866316-1 (Version None)
Quarter: 2011Q4

REPORT INFORMATION
  Report Type: 
  Country: None (occurrence: None)
  Receive Date: 20111028
  Receipt Date: 20110404
  Transmission Date: 20120403
  Serious: No
  Sender: FDA-Public Use
  Company Number: US-MYLANLABS-2011S1007203

PATIENT
  Sex: Female

DRUGS (2)
  1. DIAZEPAM [Suspect]
     Indication: ANXIETY
     Dosage: 1 TO TWO TABLETS AS NEEDED
     Route: 048
     Dates: start: 20091001
  2. DIAZEPAM [Suspect]
     Dosage: 1 TO TWO TABLETS AS NEEDED
     Route: 048
     Dates: start: 20091001

REACTIONS (3)
  - DYSPNOEA [None]
  - ASTHENIA [None]
  - NEURALGIA [None]
